FAERS Safety Report 8356516-9 (Version None)
Quarter: 2012Q2

REPORT INFORMATION
  Report Type: 
  Country: None (occurrence: None)
  Receive Date: 20120514
  Receipt Date: 20120501
  Transmission Date: 20120825
  Serious: Yes (Death, Hospitalization, Other)
  Sender: FDA-Public Use
  Company Number: PHHY2012GB003857

PATIENT
  Sex: Female

DRUGS (3)
  1. GLEEVEC [Suspect]
     Dosage: 600 MG, DAILY
     Dates: start: 20110803, end: 20111221
  2. GLEEVEC [Suspect]
     Indication: CHRONIC MYELOID LEUKAEMIA
     Dates: start: 20100101
  3. GLEEVEC [Suspect]
     Dosage: 800 MG, DAILY
     Dates: start: 20111221, end: 20120312

REACTIONS (10)
  - TONSILLAR HYPERTROPHY [None]
  - NEUTROPENIA [None]
  - HEPATOSPLENOMEGALY [None]
  - THROMBOCYTOSIS [None]
  - CHRONIC MYELOID LEUKAEMIA [None]
  - WHITE BLOOD CELL COUNT INCREASED [None]
  - DYSPHAGIA [None]
  - ANAEMIA [None]
  - DRUG INEFFECTIVE [None]
  - PYREXIA [None]
